FAERS Safety Report 8890054 (Version 1)
Quarter: 2012Q4

REPORT INFORMATION
  Report Type: 
  Country: CA (occurrence: CA)
  Receive Date: 20121106
  Receipt Date: 20121106
  Transmission Date: 20130627
  Serious: Yes (Other)
  Sender: FDA-Public Use
  Company Number: PHMT2007CA01668

PATIENT
  Age: 63 Year
  Sex: Male
  Weight: 78 kg

DRUGS (1)
  1. ZOMETA [Suspect]
     Indication: PROSTATE CANCER
     Dosage: 4 mg, every 4 weeks
     Route: 042
     Dates: start: 20070706, end: 20070706

REACTIONS (4)
  - General physical health deterioration [Unknown]
  - Influenza like illness [Unknown]
  - Fatigue [Unknown]
  - Asthenia [Unknown]
